FAERS Safety Report 6381943-9 (Version None)
Quarter: 2009Q3

REPORT INFORMATION
  Report Type: 
  Country: None (occurrence: None)
  Receive Date: 20090930
  Receipt Date: 20090828
  Transmission Date: 20100115
  Serious: No
  Sender: FDA-Public Use
  Company Number: US-TYCO HEALTHCARE/MALLINCKRODT-T200901614

PATIENT
  Sex: Female
  Weight: 107.94 kg

DRUGS (8)
  1. HYDROMORPHONE HCL [Suspect]
     Indication: BACK PAIN
     Dosage: 1-2 TABS, 4X DAY, PRN
     Route: 048
     Dates: start: 20090826, end: 20090826
  2. LEVOTHYROXINE SODIUM [Concomitant]
     Indication: HYPOTHYROIDISM
     Dosage: 150 MCG, QD
     Route: 048
     Dates: start: 19940101
  3. BUPROPION HCL [Concomitant]
     Indication: LOSS OF LIBIDO
     Dosage: 150 MG, QD
     Route: 048
     Dates: start: 20090201
  4. NABUMETONE [Concomitant]
     Indication: ANTIINFLAMMATORY THERAPY
     Dosage: 750 MG, BID
     Route: 048
     Dates: start: 20080101
  5. GABAPENTIN [Concomitant]
     Indication: NEURALGIA
     Dosage: 800 MG, TID
     Route: 048
  6. CYMBALTA [Concomitant]
     Indication: PAIN
     Dosage: 60 MG, QD
     Route: 048
     Dates: start: 20080101
  7. ZANAFLEX [Concomitant]
     Indication: MUSCLE RELAXANT THERAPY
     Dosage: 4 MG, TID
     Route: 048
     Dates: start: 20080101
  8. ZYRTEC [Concomitant]
     Indication: SEASONAL ALLERGY
     Dosage: 10 MG, QD
     Route: 048

REACTIONS (2)
  - ERYTHEMA [None]
  - PRURITUS GENERALISED [None]
